FAERS Safety Report 12446644 (Version 1)
Quarter: 2016Q2

REPORT INFORMATION
  Report Type: Spontaneous
  Country: US (occurrence: US)
  Receive Date: 20160608
  Receipt Date: 20160608
  Transmission Date: 20160815
  Serious: No
  Sender: FDA-Public Use
  Company Number: US-BAYER-2016-112094

PATIENT
  Age: 91 Year
  Sex: Male
  Weight: 73.92 kg

DRUGS (6)
  1. INS [INSULIN] [Concomitant]
  2. ONE A DAY MENS [VIT C,B5,D3,B12,B9,B3,B6,RETINOL,B2,B1 HCL,VIT E] [Concomitant]
     Dosage: 1 DF, QD
  3. DIGOXIN [DIGOXIN] [Concomitant]
     Active Substance: DIGOXIN
     Dosage: 1 DF, QD
  4. MIRALAX [Suspect]
     Active Substance: POLYETHYLENE GLYCOL 3350
     Indication: CONSTIPATION
     Dosage: 1 DF, QD
     Route: 048
  5. SIMVASTATIN. [Concomitant]
     Active Substance: SIMVASTATIN
  6. REKORD B12 COMPLEX [Concomitant]
     Active Substance: ARGININE\CYANOCOBALAMIN\DEXFOSFOSERINE\FOLIC ACID\THREONINE\TRYPTOPHAN

REACTIONS (1)
  - Expired product administered [None]
